FAERS Safety Report 12670995 (Version 1)
Quarter: 2016Q3

REPORT INFORMATION
  Report Type: Spontaneous
  Country: DE (occurrence: DE)
  Receive Date: 20160822
  Receipt Date: 20160822
  Transmission Date: 20161109
  Serious: Yes (Other)
  Sender: FDA-Public Use
  Company Number: DE-ACCORD-043268

PATIENT
  Age: 33 Year
  Sex: Male

DRUGS (3)
  1. PACLITAXEL/PACLITAXEL LIPOSOME [Suspect]
     Active Substance: PACLITAXEL
     Indication: TERATOMA
  2. GEMCITABINE/GEMCITABINE HYDROCHLORIDE [Suspect]
     Active Substance: GEMCITABINE\GEMCITABINE HYDROCHLORIDE
     Indication: TERATOMA
  3. OXALIPLATIN. [Suspect]
     Active Substance: OXALIPLATIN
     Indication: TERATOMA

REACTIONS (7)
  - Pancytopenia [Unknown]
  - Metastases to bone [None]
  - Metastases to liver [None]
  - Polyneuropathy [Unknown]
  - Drug ineffective [Unknown]
  - Metastases to lymph nodes [None]
  - Off label use [Unknown]
